FAERS Safety Report 8119204-X (Version None)
Quarter: 2012Q1

REPORT INFORMATION
  Report Type: 
  Country: None (occurrence: None)
  Receive Date: 20120207
  Receipt Date: 20120123
  Transmission Date: 20120608
  Serious: Yes (Hospitalization, Other)
  Sender: FDA-Public Use
  Company Number: JP-ROCHE-1012780

PATIENT
  Age: 4 Decade
  Sex: Female

DRUGS (11)
  1. PREDNISOLONE AND PREDNISOLONE ACETATE AND PREDNISOLONE SODIUM SUCCINAT [Suspect]
     Indication: PROPHYLAXIS AGAINST TRANSPLANT REJECTION
     Dosage: 40-50MG/DAY
     Route: 042
     Dates: start: 20080605, end: 20080610
  2. TACROLIMUS [Suspect]
     Route: 048
     Dates: start: 20101231
  3. TACROLIMUS [Suspect]
     Indication: PROPHYLAXIS AGAINST TRANSPLANT REJECTION
     Route: 048
     Dates: start: 20080602, end: 20101230
  4. INSULIN [Concomitant]
     Indication: TYPE 1 DIABETES MELLITUS
     Dosage: 20-40U/DAY
     Route: 058
     Dates: start: 19880101, end: 20080604
  5. MYCOPHENOLATE MOFETIL (CELLCEPT) [Suspect]
     Route: 048
     Dates: start: 20110415
  6. BASILIXIMAB [Suspect]
     Indication: PROPHYLAXIS AGAINST TRANSPLANT REJECTION
     Route: 042
     Dates: start: 20080604, end: 20080604
  7. SOLU-MEDROL [Concomitant]
     Indication: PROPHYLAXIS AGAINST TRANSPLANT REJECTION
     Route: 042
     Dates: start: 20080604, end: 20080604
  8. MYCOPHENOLATE MOFETIL (CELLCEPT) [Suspect]
     Indication: PROPHYLAXIS AGAINST TRANSPLANT REJECTION
     Route: 048
     Dates: start: 20080605, end: 20101228
  9. MYCOPHENOLATE MOFETIL (CELLCEPT) [Suspect]
     Route: 048
     Dates: start: 20101229, end: 20110414
  10. PREDNISOLONE AND PREDNISOLONE ACETATE AND PREDNISOLONE SODIUM SUCCINAT [Suspect]
     Dosage: 5-30MG/DAY
     Route: 048
     Dates: start: 20080611
  11. BASILIXIMAB [Suspect]
     Route: 042
     Dates: start: 20080608, end: 20080608

REACTIONS (10)
  - PYREXIA [None]
  - MALAISE [None]
  - DECREASED APPETITE [None]
  - PULMONARY GRANULOMA [None]
  - HERPES ZOSTER [None]
  - DIARRHOEA [None]
  - VOMITING [None]
  - DEHYDRATION [None]
  - NASOPHARYNGITIS [None]
  - HEADACHE [None]
